APPROVED DRUG PRODUCT: NUVIGIL
Active Ingredient: ARMODAFINIL
Strength: 50MG
Dosage Form/Route: TABLET;ORAL
Application: N021875 | Product #001 | TE Code: AB
Applicant: NUVO PHARMACEUTICALS (IRELAND) DAC
Approved: Jun 15, 2007 | RLD: Yes | RS: No | Type: RX